FAERS Safety Report 5449907-7 (Version None)
Quarter: 2007Q3

REPORT INFORMATION
  Report Type: 
  Country: None (occurrence: None)
  Receive Date: 20070910
  Receipt Date: 20070910
  Transmission Date: 20080115
  Serious: Yes (Hospitalization)
  Sender: FDA-Public Use
  Company Number: None

PATIENT
  Sex: Female
  Weight: 65.77 kg

DRUGS (4)
  1. CISPLATIN [Suspect]
     Dosage: 88 MG
  2. DOXORUBICIN HYDROCHLORIDE [Suspect]
     Dosage: 53 MG
  3. G-CSF (FILGRASTIM, AMGEN) [Suspect]
     Dosage: 6 MG
  4. TAXOL [Suspect]
     Dosage: 219 MG

REACTIONS (11)
  - ANAEMIA OF CHRONIC DISEASE [None]
  - DEHYDRATION [None]
  - EJECTION FRACTION DECREASED [None]
  - FLUID RETENTION [None]
  - HYDRONEPHROSIS [None]
  - PERICARDIAL EFFUSION [None]
  - PLATELET COUNT DECREASED [None]
  - PULMONARY OEDEMA [None]
  - RENAL FAILURE ACUTE [None]
  - RIGHT VENTRICULAR SYSTOLIC PRESSURE DECREASED [None]
  - URINARY TRACT INFECTION [None]
